FAERS Safety Report 25321499 (Version 2)
Quarter: 2025Q2

REPORT INFORMATION
  Report Type: Report from Study
  Country: CA (occurrence: CA)
  Receive Date: 20250516
  Receipt Date: 20250521
  Transmission Date: 20250716
  Serious: Yes (Hospitalization)
  Sender: ABBVIE
  Company Number: CA-ABBVIE-6283008

PATIENT
  Age: 78 Year
  Sex: Male

DRUGS (1)
  1. VYALEV [Suspect]
     Active Substance: FOSCARBIDOPA\FOSLEVODOPA
     Indication: Product used for unknown indication
     Route: 058
     Dates: start: 20250204

REACTIONS (13)
  - Hypervolaemia [Recovering/Resolving]
  - Weight increased [Unknown]
  - Dyspnoea [Unknown]
  - Movement disorder [Unknown]
  - Lethargy [Unknown]
  - Fatigue [Unknown]
  - Hypotension [Unknown]
  - Catheter site pain [Unknown]
  - Catheter site swelling [Unknown]
  - Fluid retention [Unknown]
  - Swelling [Unknown]
  - Device issue [Unknown]
  - Peripheral swelling [Unknown]

NARRATIVE: CASE EVENT DATE: 20250101
